FAERS Safety Report 5692223-9 (Version None)
Quarter: 2008Q2

REPORT INFORMATION
  Report Type: 
  Country: None (occurrence: None)
  Receive Date: 20080402
  Receipt Date: 20080327
  Transmission Date: 20081010
  Serious: Yes (Death, Other)
  Sender: FDA-Public Use
  Company Number: JP-BRISTOL-MYERS SQUIBB COMPANY-14120497

PATIENT
  Age: 56 Year
  Sex: Female

DRUGS (6)
  1. BARACLUDE [Suspect]
     Indication: HEPATITIS B
     Route: 048
     Dates: start: 20071108, end: 20071202
  2. PREDONINE [Suspect]
     Indication: RHEUMATOID ARTHRITIS
     Route: 048
     Dates: start: 20060101, end: 20070101
  3. INFREE S [Concomitant]
     Route: 048
  4. SELBEX [Concomitant]
     Route: 048
  5. LITHIUM CARBONATE [Concomitant]
     Route: 048
  6. WYPAX [Concomitant]
     Route: 048

REACTIONS (3)
  - CATHETER RELATED INFECTION [None]
  - HEPATITIS FULMINANT [None]
  - INFECTION [None]
